FAERS Safety Report 21529704 (Version 1)
Quarter: 2022Q4

REPORT INFORMATION
  Report Type: Spontaneous
  Country: GB (occurrence: GB)
  Receive Date: 20221031
  Receipt Date: 20221031
  Transmission Date: 20230112
  Serious: Yes (Hospitalization)
  Sender: FDA-Public Use
  Company Number: None

PATIENT
  Age: 93 Year
  Sex: Female

DRUGS (8)
  1. PRAMIPEXOLE [Suspect]
     Active Substance: PRAMIPEXOLE
     Indication: Restless legs syndrome
     Dosage: UNK
     Route: 065
  2. LEVOTHYROXINE SODIUM [Concomitant]
     Active Substance: LEVOTHYROXINE SODIUM
     Dosage: 75 MICROGRAM, QD
     Route: 065
  3. LEVOTHYROXINE SODIUM [Concomitant]
     Active Substance: LEVOTHYROXINE SODIUM
     Dosage: 50 MICROGRAM, QD
     Route: 065
  4. CHOLECALCIFEROL [Concomitant]
     Active Substance: CHOLECALCIFEROL
     Dosage: 400 INTERNATIONAL UNIT, BID (TAKE ONE TWICE DAILY)
     Route: 065
  5. ACETAMINOPHEN [Concomitant]
     Active Substance: ACETAMINOPHEN
     Dosage: ONE OR TWO TO BE TAKEN EVERY 4-6 HOURS UP TO FOUR TIMES A DAY IF REQUIRED
     Route: 065
  6. EUMOVATE [Concomitant]
     Active Substance: CLOBETASONE BUTYRATE
     Dosage: ONCE OR TWICE A DAY FOR UP TO 2 WEEKS
     Route: 065
  7. Zeroaqs [Concomitant]
     Dosage: 500 MILLIGRAM, PRN (TWICE DAILY AS MOISTURISER; AND AS NEEDED 500 GRAM)
     Route: 065
  8. CALCIUM CARBONATE [Concomitant]
     Active Substance: CALCIUM CARBONATE
     Dosage: 1.5 GRAM, BID (TAKE ONE TWICE DAILY)
     Route: 065

REACTIONS (1)
  - Hyponatraemia [Recovered/Resolved]
